FAERS Safety Report 8545689-0 (Version None)
Quarter: 2012Q3

REPORT INFORMATION
  Report Type: 
  Country: None (occurrence: None)
  Receive Date: 20120727
  Receipt Date: 20120713
  Transmission Date: 20120928
  Serious: Yes (Disabling)
  Sender: FDA-Public Use
  Company Number: CHPA2012US015670

PATIENT
  Age: 91 Year
  Sex: Female

DRUGS (1)
  1. MYOFLEX ANALGESIC CREME [Suspect]
     Indication: ARTHRALGIA
     Dosage: A LITTLE TWICE A DAY
     Route: 061
     Dates: start: 20110101, end: 20120101

REACTIONS (4)
  - DISEASE RECURRENCE [None]
  - FALL [None]
  - ABASIA [None]
  - ARTHRITIS [None]
